FAERS Safety Report 17354533 (Version 1)
Quarter: 2020Q1

REPORT INFORMATION
  Report Type: Spontaneous
  Country: US (occurrence: US)
  Receive Date: 20200131
  Receipt Date: 20200131
  Transmission Date: 20200409
  Serious: Yes (Other)
  Sender: FDA-Public Use
  Company Number: US-GW PHARMA-202001USGW00307

PATIENT

DRUGS (2)
  1. EPIDIOLEX [Suspect]
     Active Substance: CANNABIDIOL
     Dosage: UNK (DOSE DECREASED)
     Route: 048
     Dates: start: 202001
  2. EPIDIOLEX [Suspect]
     Active Substance: CANNABIDIOL
     Indication: LENNOX-GASTAUT SYNDROME
     Dosage: 110 MILLIGRAM, BID
     Route: 048
     Dates: start: 201910, end: 202001

REACTIONS (5)
  - Aspartate aminotransferase increased [Unknown]
  - Somnolence [Unknown]
  - Blood urea increased [Unknown]
  - Blood alkaline phosphatase increased [Unknown]
  - Decreased appetite [Unknown]

NARRATIVE: CASE EVENT DATE: 202001
